FAERS Safety Report 18118622 (Version 1)
Quarter: 2020Q3

REPORT INFORMATION
  Report Type: Spontaneous
  Country: US (occurrence: US)
  Receive Date: 20200806
  Receipt Date: 20200806
  Transmission Date: 20201103
  Serious: No
  Sender: FDA-Public Use
  Company Number: US-PFIZER INC-2020296883

PATIENT
  Age: 50 Year
  Sex: Female

DRUGS (1)
  1. IBRANCE [Suspect]
     Active Substance: PALBOCICLIB
     Dosage: UNK

REACTIONS (9)
  - Neoplasm progression [Unknown]
  - Nausea [Unknown]
  - Vomiting [Unknown]
  - Vertigo [Unknown]
  - Hot flush [Unknown]
  - Blood count abnormal [Unknown]
  - Vasodilatation [Unknown]
  - Flushing [Unknown]
  - Cold sweat [Unknown]
